FAERS Safety Report 21150645 (Version 1)
Quarter: 2022Q3

REPORT INFORMATION
  Report Type: Spontaneous
  Country: US (occurrence: US)
  Receive Date: 20220729
  Receipt Date: 20220729
  Transmission Date: 20221026
  Serious: No
  Sender: FDA-Public Use
  Company Number: US-NOVOPROD-936133

PATIENT
  Sex: Female

DRUGS (2)
  1. OZEMPIC [Suspect]
     Active Substance: SEMAGLUTIDE
     Dosage: UNK
     Route: 058
  2. OZEMPIC [Suspect]
     Active Substance: SEMAGLUTIDE
     Indication: Type 2 diabetes mellitus
     Dosage: 0.25MG
     Route: 058
     Dates: start: 20211230

REACTIONS (5)
  - Increased appetite [Not Recovered/Not Resolved]
  - Product communication issue [Not Recovered/Not Resolved]
  - Product label confusion [Not Recovered/Not Resolved]
  - Product confusion [Not Recovered/Not Resolved]
  - Off label use [Not Recovered/Not Resolved]
